FAERS Safety Report 6194678-2 (Version None)
Quarter: 2009Q2

REPORT INFORMATION
  Report Type: 
  Country: None (occurrence: None)
  Receive Date: 20090515
  Receipt Date: 20090511
  Transmission Date: 20091009
  Serious: Yes (Death, Other)
  Sender: FDA-Public Use
  Company Number: 230385J08CAN

PATIENT
  Sex: Male

DRUGS (3)
  1. REBIF [Suspect]
     Indication: RELAPSING-REMITTING MULTIPLE SCLEROSIS
     Dosage: 44 MCG, 3 IN 1 WEEKS
     Dates: start: 20070509, end: 20080706
  2. PREGABALIN [Concomitant]
  3. ALFUZOSIN HCL [Concomitant]

REACTIONS (5)
  - APATHY [None]
  - COMPLETED SUICIDE [None]
  - HYPOPHAGIA [None]
  - INSOMNIA [None]
  - THINKING ABNORMAL [None]
